FAERS Safety Report 17942855 (Version 1)
Quarter: 2020Q2

REPORT INFORMATION
  Report Type: Spontaneous
  Country: FR (occurrence: FR)
  Receive Date: 20200625
  Receipt Date: 20200625
  Transmission Date: 20200714
  Serious: Yes (Hospitalization)
  Sender: FDA-Public Use
  Company Number: NVSC2020FR175793

PATIENT
  Age: 87 Year
  Sex: Female

DRUGS (3)
  1. SERTRALIN BASE [Suspect]
     Active Substance: SERTRALINE HYDROCHLORIDE
     Indication: DEPRESSION
     Dosage: 50 MG, QD
     Route: 048
     Dates: start: 20200303, end: 20200421
  2. FUROSEMIDE. [Suspect]
     Active Substance: FUROSEMIDE
     Indication: CARDIAC FAILURE
     Dosage: 20 MG, QD
     Route: 048
     Dates: start: 20200313
  3. CIRCADIN [Suspect]
     Active Substance: MELATONIN
     Indication: DEPRESSION
     Dosage: 1 DF (2MG), QD
     Route: 048
     Dates: start: 20200303, end: 20200421

REACTIONS (1)
  - Hyponatraemia [Recovered/Resolved]

NARRATIVE: CASE EVENT DATE: 20200420
